FAERS Safety Report 13661883 (Version 1)
Quarter: 2017Q2

REPORT INFORMATION
  Report Type: Spontaneous
  Country: GB (occurrence: GB)
  Receive Date: 20170616
  Receipt Date: 20170616
  Transmission Date: 20170830
  Serious: Yes (Other)
  Sender: FDA-Public Use
  Company Number: GB-MYLANLABS-2017M1036631

PATIENT

DRUGS (2)
  1. PIPERACILLIN/TAZOBACTAM [Suspect]
     Active Substance: PIPERACILLIN SODIUM\TAZOBACTAM SODIUM
     Indication: ANTIBIOTIC THERAPY
     Route: 042
  2. GENTAMICIN. [Suspect]
     Active Substance: GENTAMICIN
     Indication: ANTIBIOTIC THERAPY
     Route: 042

REACTIONS (8)
  - Gastrointestinal disorder [None]
  - Weight decreased [Unknown]
  - Anxiety [None]
  - Contusion [None]
  - Candida infection [Recovered/Resolved]
  - Opportunistic infection [None]
  - Functional gastrointestinal disorder [Unknown]
  - Procedural complication [None]
